FAERS Safety Report 11985697 (Version 1)
Quarter: 2016Q1

REPORT INFORMATION
  Report Type: Report from Study
  Country: US (occurrence: US)
  Receive Date: 20160201
  Receipt Date: 20160201
  Transmission Date: 20160526
  Serious: No
  Sender: FDA-Public Use
  Company Number: US-ABBVIE-15P-163-1449991-00

PATIENT
  Age: 58 Year
  Sex: Female

DRUGS (3)
  1. RIBAVIRIN. [Suspect]
     Active Substance: RIBAVIRIN
     Route: 048
     Dates: start: 20150512, end: 20150610
  2. TECHNIVIE [Suspect]
     Active Substance: OMBITASVIR HEMINONAHYDRATE\PARITAPREVIR DIHYDRATE\RITONAVIR
     Indication: HEPATITIS C
     Route: 048
     Dates: start: 20150309, end: 20150610
  3. RIBAVIRIN. [Suspect]
     Active Substance: RIBAVIRIN
     Indication: HEPATITIS C
     Route: 048
     Dates: start: 20150309, end: 20150511

REACTIONS (9)
  - Anaemia [Unknown]
  - Insomnia [Unknown]
  - Abnormal loss of weight [Unknown]
  - Influenza like illness [Unknown]
  - Irritability [Unknown]
  - Rash [Unknown]
  - Disturbance in attention [Unknown]
  - Headache [Unknown]
  - Increased appetite [Unknown]

NARRATIVE: CASE EVENT DATE: 20150310
